FAERS Safety Report 4588028-2 (Version None)
Quarter: 2005Q1

REPORT INFORMATION
  Report Type: 
  Country: None (occurrence: None)
  Receive Date: 20050216
  Receipt Date: 20050203
  Transmission Date: 20050727
  Serious: Yes (Life-Threatening, Hospitalization)
  Sender: FDA-Public Use
  Company Number: 2005027961

PATIENT
  Age: 20 Year
  Sex: Male

DRUGS (1)
  1. AMLODIPINE [Suspect]
     Indication: ILL-DEFINED DISORDER
     Dosage: 40 TABLETS (10 MG), ORAL
     Route: 048

REACTIONS (10)
  - BLOOD PRESSURE DECREASED [None]
  - CENTRAL VENOUS PRESSURE INCREASED [None]
  - INTENTIONAL MISUSE [None]
  - NEUTROPHIL PERCENTAGE INCREASED [None]
  - NON-CARDIOGENIC PULMONARY OEDEMA [None]
  - RESPIRATORY FAILURE [None]
  - SINUS TACHYCARDIA [None]
  - SUICIDE ATTEMPT [None]
  - TACHYPNOEA [None]
  - WHITE BLOOD CELL COUNT INCREASED [None]
